FAERS Safety Report 15264077 (Version 2)
Quarter: 2018Q3

REPORT INFORMATION
  Report Type: Spontaneous
  Country: ZA (occurrence: ZA)
  Receive Date: 20180810
  Receipt Date: 20180928
  Transmission Date: 20181010
  Serious: Yes (Other)
  Sender: FDA-Public Use
  Company Number: PHHY2018ZA063689

PATIENT
  Age: 54 Year
  Sex: Male

DRUGS (2)
  1. VOTRIENT [Suspect]
     Active Substance: PAZOPANIB HYDROCHLORIDE
     Indication: CHORDOMA
     Dosage: 800 MG, UNK
     Route: 048
  2. VOTRIENT [Suspect]
     Active Substance: PAZOPANIB HYDROCHLORIDE
     Dosage: 400 MG, UNK
     Route: 048
     Dates: start: 201802, end: 201808

REACTIONS (14)
  - Acidosis [Unknown]
  - Abdominal discomfort [Unknown]
  - Oropharyngeal pain [Recovered/Resolved]
  - Glossodynia [Recovered/Resolved]
  - Hyposmia [Unknown]
  - Dysgeusia [Unknown]
  - Nausea [Unknown]
  - Constipation [Unknown]
  - Musculoskeletal stiffness [Unknown]
  - Diarrhoea [Unknown]
  - Nephrolithiasis [Unknown]
  - Heart rate increased [Unknown]
  - Muscle spasms [Unknown]
  - Hair colour changes [Recovering/Resolving]
